FAERS Safety Report 9167917 (Version 1)
Quarter: 2013Q1

REPORT INFORMATION
  Report Type: Spontaneous
  Country: FR (occurrence: None)
  Receive Date: 20130304
  Receipt Date: 20130304
  Transmission Date: 20140127
  Serious: Yes (Hospitalization)
  Sender: FDA-Public Use
  Company Number: 0220650

PATIENT
  Age: 71 Year
  Sex: Male

DRUGS (4)
  1. TACHOSIL [Suspect]
     Indication: PANCREATECTOMY
     Dates: start: 20100922, end: 20100922
  2. GLUCOPHAGE (METFORMIN) [Concomitant]
  3. ORACILLINE (PHENOXYMETHYLPENICILLIN) [Concomitant]
  4. LOVENOX (HEPARTIN-FRACTION, SODIUM SALT) [Concomitant]

REACTIONS (8)
  - Abdominal pain [None]
  - Subileus [None]
  - Pyrexia [None]
  - Anaemia [None]
  - Leukocytosis [None]
  - Thrombocytopenia [None]
  - Intra-abdominal haematoma [None]
  - Extravasation [None]
